FAERS Safety Report 7918500-6 (Version None)
Quarter: 2011Q4

REPORT INFORMATION
  Report Type: 
  Country: None (occurrence: None)
  Receive Date: 20111116
  Receipt Date: 20111108
  Transmission Date: 20120403
  Serious: No
  Sender: FDA-Public Use
  Company Number: US-COVIDIEN/TYCO HEALTHCARE/MALLINCKRODT-T201102600

PATIENT
  Age: 74 Year
  Sex: Female

DRUGS (2)
  1. FENTANYL-100 [Suspect]
     Dosage: 50 UG/HR, UNK
     Dates: start: 20110901
  2. FENTANYL-100 [Suspect]
     Dosage: 75 UG/HR, UNK
     Dates: start: 20110401

REACTIONS (3)
  - WITHDRAWAL SYNDROME [None]
  - DEPRESSION [None]
  - LIBIDO INCREASED [None]
